FAERS Safety Report 9351578 (Version 3)
Quarter: 2013Q4

REPORT INFORMATION
  Report Type: Report from Study
  Country: FR (occurrence: FR)
  Receive Date: 20130617
  Receipt Date: 20131029
  Transmission Date: 20140711
  Serious: Yes (Hospitalization)
  Sender: FDA-Public Use
  Company Number: FR-BRISTOL-MYERS SQUIBB COMPANY-19015023

PATIENT
  Age: 71 Year
  Sex: Male
  Weight: 57 kg

DRUGS (1)
  1. ERBITUX [Suspect]
     Indication: SQUAMOUS CELL CARCINOMA OF HEAD AND NECK
     Dosage: MOST RECENT DOSE : 13FEB13?13FEB13 ERBITUX WITHDRAWN?07MAR13 RESTART AT SAME DOSE
     Route: 042
     Dates: start: 20130128

REACTIONS (1)
  - Septic shock [Recovered/Resolved with Sequelae]
